FAERS Safety Report 6445462-3 (Version None)
Quarter: 2009Q4

REPORT INFORMATION
  Report Type: 
  Country: None (occurrence: None)
  Receive Date: 20091110
  Receipt Date: 20090807
  Transmission Date: 20100525
  Serious: No
  Sender: FDA-Public Use
  Company Number: 1000008087

PATIENT
  Sex: Female

DRUGS (1)
  1. SAVELLA [Suspect]
     Dosage: ORAL
     Route: 048
     Dates: start: 20090806

REACTIONS (3)
  - HEADACHE [None]
  - MYALGIA [None]
  - TENSION [None]
